FAERS Safety Report 4829500-7 (Version None)
Quarter: 2005Q4

REPORT INFORMATION
  Report Type: 
  Country: None (occurrence: None)
  Receive Date: 20051116
  Receipt Date: 20051025
  Transmission Date: 20060501
  Serious: Yes (Other)
  Sender: FDA-Public Use
  Company Number: PHBS2005BR15979

PATIENT
  Age: 16 Year
  Sex: Male
  Weight: 117 kg

DRUGS (4)
  1. RITALIN [Suspect]
     Indication: ATTENTION DEFICIT/HYPERACTIVITY DISORDER
     Dosage: 10 MG/D
     Route: 048
  2. RIVOTRIL [Concomitant]
     Dosage: UNK, QD
     Route: 048
  3. RITALIN LA [Suspect]
     Indication: ATTENTION DEFICIT/HYPERACTIVITY DISORDER
     Dosage: 30 MG/D
     Route: 048
  4. RITALIN LA [Suspect]
     Dosage: 20 MG/D
     Route: 048

REACTIONS (4)
  - DISCOMFORT [None]
  - LOSS OF CONSCIOUSNESS [None]
  - MUSCLE CONTRACTIONS INVOLUNTARY [None]
  - TREMOR [None]
